FAERS Safety Report 7019317-X (Version None)
Quarter: 2010Q3

REPORT INFORMATION
  Report Type: 
  Country: None (occurrence: None)
  Receive Date: 20100922
  Receipt Date: 20100909
  Transmission Date: 20110219
  Serious: Yes (Hospitalization)
  Sender: FDA-Public Use
  Company Number: 014852

PATIENT
  Sex: Female

DRUGS (5)
  1. KEPPRA [Suspect]
     Indication: EPILEPSY
     Dosage: SEE IMAGE
     Dates: start: 20100628, end: 20100101
  2. KEPPRA [Suspect]
     Indication: EPILEPSY
     Dosage: SEE IMAGE
     Dates: start: 20100101, end: 20100621
  3. KEPPRA [Suspect]
     Indication: EPILEPSY
     Dosage: SEE IMAGE
     Dates: start: 20100621, end: 20100628
  4. KEPPRA [Suspect]
     Indication: EPILEPSY
     Dosage: SEE IMAGE
     Dates: start: 20100101
  5. KEPPRA [Suspect]
     Indication: EPILEPSY
     Dosage: SEE IMAGE
     Dates: start: 20100401

REACTIONS (7)
  - CONVULSION [None]
  - DELUSION [None]
  - HEADACHE [None]
  - INSOMNIA [None]
  - NAUSEA [None]
  - PSYCHOTIC DISORDER DUE TO A GENERAL MEDICAL CONDITION [None]
  - VOMITING [None]
